FAERS Safety Report 9206901 (Version 2)
Quarter: 2013Q4

REPORT INFORMATION
  Report Type: Spontaneous
  Country: US (occurrence: US)
  Receive Date: 20130403
  Receipt Date: 20131111
  Transmission Date: 20140711
  Serious: Yes (Hospitalization, Other)
  Sender: FDA-Public Use
  Company Number: US-BAYER-2013-040451

PATIENT
  Age: 38 Year
  Sex: Female

DRUGS (13)
  1. YAZ [Suspect]
     Dosage: UNK
     Dates: start: 2007, end: 2008
  2. YASMIN [Suspect]
     Dosage: UNK
     Dates: start: 2007, end: 2008
  3. OCELLA [Suspect]
     Dosage: UNK
     Dates: start: 2007, end: 2008
  4. BENTYL [Concomitant]
  5. PHENERGAN [Concomitant]
     Indication: NAUSEA
  6. PHENERGAN [Concomitant]
     Indication: VOMITING
  7. PERCOCET [Concomitant]
     Indication: PAIN
  8. NEXIUM [Concomitant]
  9. PROTONIX [Concomitant]
  10. ZANTAC [Concomitant]
  11. CLONIDINE [Concomitant]
     Indication: BLOOD PRESSURE INCREASED
  12. CIPROFLOXACIN [Concomitant]
  13. FLAGYL [Concomitant]

REACTIONS (10)
  - Cholelithiasis [None]
  - Cholecystitis acute [None]
  - Abdominal pain [None]
  - Injury [None]
  - Emotional distress [None]
  - General physical health deterioration [None]
  - Anxiety [None]
  - Pain [None]
  - Fear [None]
  - Anhedonia [None]
